FAERS Safety Report 25225317 (Version 1)
Quarter: 2025Q2

REPORT INFORMATION
  Report Type: Spontaneous
  Country: DE (occurrence: DE)
  Receive Date: 20250422
  Receipt Date: 20250422
  Transmission Date: 20250717
  Serious: Yes (Hospitalization, Other)
  Sender: INSUD PHARMA
  Company Number: None

PATIENT
  Age: 58 Year
  Sex: Female
  Weight: 72 kg

DRUGS (5)
  1. PROGESTERONE [Suspect]
     Active Substance: PROGESTERONE
  2. ESTRADIOL [Suspect]
     Active Substance: ESTRADIOL
     Indication: Menopausal symptoms
     Dosage: 1 HUB,  0,6 MG/G GEL
     Route: 062
     Dates: start: 20250318, end: 20250326
  3. ESTRADIOL [Suspect]
     Active Substance: ESTRADIOL
     Indication: Myalgia
  4. ESTRADIOL [Suspect]
     Active Substance: ESTRADIOL
     Indication: Tendon pain
  5. ESTRADIOL [Suspect]
     Active Substance: ESTRADIOL
     Indication: Hot flush

REACTIONS (3)
  - Syncope [Recovered/Resolved]
  - Aphasia [Recovered/Resolved]
  - Epilepsy [Recovered/Resolved]

NARRATIVE: CASE EVENT DATE: 20250326
